FAERS Safety Report 6988125-8 (Version None)
Quarter: 2010Q3

REPORT INFORMATION
  Report Type: 
  Country: None (occurrence: None)
  Receive Date: 20100916
  Receipt Date: 20100910
  Transmission Date: 20110219
  Serious: Yes (Hospitalization)
  Sender: FDA-Public Use
  Company Number: B0674411A

PATIENT
  Sex: Female

DRUGS (11)
  1. SERETIDE [Suspect]
     Indication: ASTHMA
     Dosage: 1000MCG PER DAY
     Route: 055
     Dates: start: 20081030
  2. PREDONINE [Concomitant]
     Indication: ASTHMA
     Dosage: 10MG PER DAY
     Route: 048
  3. PREDONINE [Concomitant]
     Dosage: 20MG PER DAY
     Route: 048
     Dates: start: 20090613, end: 20090619
  4. PREDONINE [Concomitant]
     Dosage: 15MG PER DAY
     Route: 048
     Dates: start: 20090620, end: 20090630
  5. PREDONINE [Concomitant]
     Dosage: 12.5MG PER DAY
     Route: 048
     Dates: start: 20090701
  6. TAKEPRON [Concomitant]
     Dosage: 15MG PER DAY
     Route: 048
  7. MUCODYNE [Concomitant]
     Indication: ASTHMA
     Dosage: 1500MG PER DAY
     Route: 048
  8. ALDACTONE [Concomitant]
     Dosage: 25MG PER DAY
     Route: 048
     Dates: end: 20081124
  9. FOSAMAC [Concomitant]
     Route: 048
  10. ONON [Concomitant]
     Indication: ASTHMA
     Dosage: 450MG PER DAY
     Route: 048
  11. UNIPHYL [Concomitant]
     Indication: ASTHMA
     Dosage: 400MG PER DAY
     Route: 048

REACTIONS (7)
  - DECREASED APPETITE [None]
  - HEADACHE [None]
  - MYALGIA [None]
  - NAUSEA [None]
  - PAIN [None]
  - POLYMYALGIA RHEUMATICA [None]
  - PYREXIA [None]
